FAERS Safety Report 23915601 (Version 2)
Quarter: 2024Q3

REPORT INFORMATION
  Report Type: Spontaneous
  Country: CO (occurrence: CO)
  Receive Date: 20240529
  Receipt Date: 20240924
  Transmission Date: 20241017
  Serious: No
  Sender: BECTON DICKINSON
  Company Number: CO-BECTON DICKINSON-CO-BD-24-000311

PATIENT

DRUGS (1)
  1. CHLORAPREP [Suspect]
     Active Substance: CHLORHEXIDINE GLUCONATE\ISOPROPYL ALCOHOL
     Indication: Product used for unknown indication
     Dosage: N/A
     Route: 065

REACTIONS (1)
  - Device physical property issue [Unknown]
